FAERS Safety Report 10051291 (Version 1)
Quarter: 2014Q2

REPORT INFORMATION
  Report Type: Spontaneous
  Country: US (occurrence: US)
  Receive Date: 20140401
  Receipt Date: 20140401
  Transmission Date: 20141212
  Serious: Yes (Other)
  Sender: FDA-Public Use
  Company Number: US-PFIZER INC-2014089270

PATIENT
  Sex: Female

DRUGS (1)
  1. XELJANZ [Suspect]
     Dosage: UNK

REACTIONS (5)
  - Pneumonia [Unknown]
  - Coma [Unknown]
  - Eye infection [Unknown]
  - Localised infection [Unknown]
  - Skin abrasion [Unknown]
